FAERS Safety Report 23510728 (Version 3)
Quarter: 2024Q2

REPORT INFORMATION
  Report Type: Spontaneous
  Country: BG (occurrence: BG)
  Receive Date: 20240211
  Receipt Date: 20240409
  Transmission Date: 20240716
  Serious: Yes (Other)
  Sender: FDA-Public Use
  Company Number: BG-ROCHE-2647773

PATIENT

DRUGS (27)
  1. GOSERELIN [Suspect]
     Active Substance: GOSERELIN
     Indication: HER2 positive breast cancer
     Dosage: 3.6 MG, EVERY 4 WEEKS
     Route: 058
     Dates: start: 201610, end: 201706
  2. ZOLADEX [Suspect]
     Active Substance: GOSERELIN ACETATE
     Indication: HER2 positive breast cancer
     Dosage: UNK
     Route: 065
  3. NOLVADEX [Suspect]
     Active Substance: TAMOXIFEN CITRATE
     Indication: HER2 positive breast cancer
     Dosage: 20 MILLIGRAM, QD
     Route: 048
     Dates: start: 201610, end: 201706
  4. TYKERB [Suspect]
     Active Substance: LAPATINIB DITOSYLATE
     Indication: HER2 positive breast cancer
     Dosage: 1250 MILLIGRAM, QD
     Route: 048
     Dates: start: 20191125, end: 20191125
  5. TAXOTERE [Suspect]
     Active Substance: DOCETAXEL
     Indication: HER2 positive breast cancer
     Dosage: 75 MILLIGRAM/SQ. METER, EVERY 3 WEEKS
     Route: 040
     Dates: start: 201610, end: 201706
  6. TAXOTERE [Suspect]
     Active Substance: DOCETAXEL
     Dosage: 120 MILLIGRAM, EVERY 3 WEEKS
     Route: 040
     Dates: start: 20170824, end: 20180808
  7. HERCEPTIN [Suspect]
     Active Substance: TRASTUZUMAB
     Indication: HER2 positive breast cancer
     Dosage: 8 MILLIGRAM/KILOGRAM
     Route: 040
     Dates: start: 20170804, end: 20170804
  8. HERCEPTIN [Suspect]
     Active Substance: TRASTUZUMAB
     Dosage: 6 MILLIGRAM/KILOGRAM, EVERY 3 WEEKS
     Route: 040
     Dates: start: 20170824, end: 20180808
  9. HERCEPTIN [Suspect]
     Active Substance: TRASTUZUMAB
     Dosage: 600 MILLIGRAM, EVERY 3 WEEKS
     Route: 040
     Dates: start: 20181219, end: 20191111
  10. HERCEPTIN [Suspect]
     Active Substance: TRASTUZUMAB
     Dosage: 6 MILLIGRAM/KILOGRAM, EVERY 3 WEEKS
     Route: 040
     Dates: start: 20200218, end: 20201009
  11. NAVELBINE [Suspect]
     Active Substance: VINORELBINE TARTRATE
     Indication: Product used for unknown indication
     Dosage: 25 MILLIGRAM/SQ. METER, EVERY 3 WEEKS
     Route: 040
     Dates: start: 20200218, end: 20201009
  12. PERJETA [Suspect]
     Active Substance: PERTUZUMAB
     Indication: HER2 positive breast cancer
     Dosage: 420 MILLIGRAM, EVERY 3 WEEKS
     Route: 040
     Dates: start: 20170804, end: 201711
  13. PERJETA [Suspect]
     Active Substance: PERTUZUMAB
     Dosage: 420 MILLIGRAM, EVERY 3 WEEKS
     Route: 042
     Dates: start: 20170824, end: 20180808
  14. PERJETA [Suspect]
     Active Substance: PERTUZUMAB
     Dosage: 420 MILLIGRAM, EVERY 3 WEEKS
     Route: 040
     Dates: start: 20190404, end: 20190624
  15. PERJETA [Suspect]
     Active Substance: PERTUZUMAB
     Dosage: 840 MILLIGRAM
     Route: 040
     Dates: start: 20200218, end: 20201009
  16. KADCYLA [Suspect]
     Active Substance: ADO-TRASTUZUMAB EMTANSINE
     Indication: HER2 positive breast cancer
     Dosage: 200 MILLIGRAM, EVERY 3 WEEKS
     Route: 040
     Dates: start: 20180830, end: 201811
  17. CAPECITABINE [Suspect]
     Active Substance: CAPECITABINE
     Indication: HER2 positive breast cancer
     Dosage: 2000 MILLIGRAM, EVERY 3 WEEKS
     Route: 048
     Dates: start: 20190530, end: 20191125
  18. XGEVA [Suspect]
     Active Substance: DENOSUMAB
     Indication: HER2 positive breast cancer
     Dosage: 120 MILLIGRAM, EVERY 4 WEEKS
     Route: 058
     Dates: start: 20181219
  19. VANCOMYCIN [Concomitant]
     Active Substance: VANCOMYCIN
     Indication: Gastrointestinal bacterial infection
     Dosage: 500 MILLIGRAM, QD
     Route: 048
     Dates: start: 20200512, end: 20200528
  20. RINGERS SOLUTION [Concomitant]
     Active Substance: CALCIUM CHLORIDE\POTASSIUM CHLORIDE\SODIUM CHLORIDE
     Indication: Paraparesis
     Dosage: 500 MILLIGRAM
     Route: 040
     Dates: start: 20200421, end: 20200508
  21. GENTAMICIN [Concomitant]
     Active Substance: GENTAMICIN
     Indication: Paraparesis
     Dosage: 80 MILLIGRAM
     Route: 048
     Dates: start: 20200421, end: 20200508
  22. MANNITOL [Concomitant]
     Active Substance: MANNITOL
     Indication: Paraparesis
     Dosage: 250 MILLIGRAM
     Route: 040
     Dates: start: 20200421, end: 20200508
  23. MORPHINE SULFATE [Concomitant]
     Active Substance: MORPHINE SULFATE
     Indication: Product used for unknown indication
     Dosage: UNK
     Route: 065
  24. METRONIDAZOLE [Concomitant]
     Active Substance: METRONIDAZOLE
     Indication: Gastrointestinal bacterial infection
     Dosage: 1500 MILLIGRAM
     Route: 048
     Dates: start: 20200512, end: 20200518
  25. FAMOTIDINE [Concomitant]
     Active Substance: FAMOTIDINE
     Indication: Gastrointestinal bacterial infection
     Dosage: 40 MILLIGRAM
     Route: 040
     Dates: start: 20200512, end: 20200528
  26. FENTANYL CITRATE [Concomitant]
     Active Substance: FENTANYL CITRATE
     Indication: Product used for unknown indication
     Dosage: UNK
     Route: 065
  27. XGEVA [Concomitant]
     Active Substance: DENOSUMAB
     Indication: Metastases to spine
     Dosage: 120 MG, EVERY 4 WEEKS
     Route: 058
     Dates: start: 201808, end: 20201009

REACTIONS (4)
  - Spinal compression fracture [Recovered/Resolved]
  - Gastrointestinal bacterial infection [Recovered/Resolved]
  - Paraparesis [Recovered/Resolved]
  - Pelvic pain [Not Recovered/Not Resolved]

NARRATIVE: CASE EVENT DATE: 20191201
